FAERS Safety Report 14377823 (Version 2)
Quarter: 2018Q1

REPORT INFORMATION
  Report Type: Spontaneous
  Country: US (occurrence: US)
  Receive Date: 20180111
  Receipt Date: 20180209
  Transmission Date: 20180509
  Serious: No
  Sender: FDA-Public Use
  Company Number: US-LEXICON PHARMACEUTICALS, INC-17-1606-01258

PATIENT
  Age: 78 Year
  Sex: Female

DRUGS (16)
  1. PROCARDIA XL [Concomitant]
     Active Substance: NIFEDIPINE
  2. ZYRTEC [Concomitant]
     Active Substance: CETIRIZINE HYDROCHLORIDE
  3. TELOTRISTAT ETHYL [Suspect]
     Active Substance: TELOTRISTAT ETHYL
     Indication: ENDOMETRIAL CANCER
     Route: 048
     Dates: start: 20171114
  4. PROCRIT [Concomitant]
     Active Substance: ERYTHROPOIETIN
  5. ALLOPURINOL. [Concomitant]
     Active Substance: ALLOPURINOL
  6. LASIX [Concomitant]
     Active Substance: FUROSEMIDE
  7. ASPIRIN. [Concomitant]
     Active Substance: ASPIRIN
  8. ZOFRAN [Concomitant]
     Active Substance: ONDANSETRON HYDROCHLORIDE
  9. LISINOPRIL. [Concomitant]
     Active Substance: LISINOPRIL
  10. VESICARE [Concomitant]
     Active Substance: SOLIFENACIN SUCCINATE
  11. CALCIUM CARB-CHOLECALCIFEROL [Concomitant]
  12. TRAMADOL HCL [Concomitant]
     Active Substance: TRAMADOL HYDROCHLORIDE
  13. PANTOPRAZOLE SODIUM. [Concomitant]
     Active Substance: PANTOPRAZOLE SODIUM
  14. PROCHLORPERAZINE. [Concomitant]
     Active Substance: PROCHLORPERAZINE
  15. SILVER NITRATE. [Concomitant]
     Active Substance: SILVER NITRATE
  16. OCTREOTIDE. [Concomitant]
     Active Substance: OCTREOTIDE

REACTIONS (3)
  - Somnolence [Unknown]
  - Off label use [Not Recovered/Not Resolved]
  - Fatigue [Unknown]

NARRATIVE: CASE EVENT DATE: 20171114
